FAERS Safety Report 9856650 (Version 2)
Quarter: 2014Q1

REPORT INFORMATION
  Report Type: Report from Study
  Country: US (occurrence: US)
  Receive Date: 20140130
  Receipt Date: 20140130
  Transmission Date: 20141002
  Serious: Yes (Death, Hospitalization, Other)
  Sender: FDA-Public Use
  Company Number: US-TEVA-451879USA

PATIENT
  Age: 76 Year
  Sex: Male

DRUGS (2)
  1. CLOZAPINE [Suspect]
     Indication: MENTAL DISORDER
     Route: 048
  2. CLOZAPINE [Suspect]
     Route: 048

REACTIONS (1)
  - Cardio-respiratory arrest [Fatal]
